FAERS Safety Report 8585915-5 (Version None)
Quarter: 2012Q3

REPORT INFORMATION
  Report Type: 
  Country: None (occurrence: None)
  Receive Date: 20120802
  Receipt Date: 20120802
  Transmission Date: 20120928
  Serious: Yes (Other)
  Sender: FDA-Public Use
  Company Number: None

PATIENT
  Age: 48 Year
  Sex: Female
  Weight: 70.3075 kg

DRUGS (1)
  1. BEYAZ [Suspect]
     Indication: PREMENSTRUAL SYNDROME
     Dosage: 1 DAY PO
     Route: 048
     Dates: start: 20120703, end: 20120713

REACTIONS (3)
  - ARTERIAL DISORDER [None]
  - DIZZINESS [None]
  - PAIN IN EXTREMITY [None]
